FAERS Safety Report 10332994 (Version 6)
Quarter: 2017Q4

REPORT INFORMATION
  Report Type: Spontaneous
  Country: US (occurrence: US)
  Receive Date: 20140722
  Receipt Date: 20171109
  Transmission Date: 20180320
  Serious: Yes (Hospitalization, Disabling, Other)
  Sender: FDA-Public Use
  Company Number: US-009507513-1407USA008642

PATIENT
  Sex: Female
  Weight: 49.43 kg

DRUGS (5)
  1. FOSAMAX [Suspect]
     Active Substance: ALENDRONATE SODIUM
     Dosage: 70 MG, QW
     Route: 048
     Dates: start: 2003, end: 201206
  2. FOSAMAX [Suspect]
     Active Substance: ALENDRONATE SODIUM
     Dosage: 70 MG, UNK
     Route: 048
     Dates: start: 20010427, end: 20020121
  3. FOSAMAX PLUS D [Suspect]
     Active Substance: ALENDRONATE SODIUM\CHOLECALCIFEROL
     Dosage: UNK
     Route: 048
  4. FOSAMAX [Suspect]
     Active Substance: ALENDRONATE SODIUM
     Indication: OSTEOPOROSIS
     Dosage: 10 MG, UNK
     Route: 048
     Dates: start: 20000401, end: 20010404
  5. ALENDRONATE SODIUM. [Suspect]
     Active Substance: ALENDRONATE SODIUM
     Dosage: UNK
     Dates: start: 2009, end: 2012

REACTIONS (17)
  - Hypertension [Unknown]
  - Pruritus [Recovered/Resolved]
  - Intramedullary rod insertion [Unknown]
  - Femur fracture [Not Recovered/Not Resolved]
  - Femur fracture [Unknown]
  - Osteopenia [Unknown]
  - Anaemia [Unknown]
  - Sjogren^s syndrome [Unknown]
  - Diabetes mellitus [Unknown]
  - Sinusitis [Unknown]
  - Pain in extremity [Unknown]
  - Joint arthroplasty [Unknown]
  - Mitral valve prolapse [Unknown]
  - Intramedullary rod insertion [Unknown]
  - Vitamin D deficiency [Recovered/Resolved]
  - Muscle spasms [Unknown]
  - Impaired healing [Unknown]

NARRATIVE: CASE EVENT DATE: 2004
